FAERS Safety Report 10019642 (Version 1)
Quarter: 2014Q1

REPORT INFORMATION
  Report Type: Spontaneous
  Country: ES (occurrence: ES)
  Receive Date: 20140318
  Receipt Date: 20140318
  Transmission Date: 20141002
  Serious: Yes (Hospitalization)
  Sender: FDA-Public Use
  Company Number: ES-PFIZER INC-2014077318

PATIENT
  Age: 88 Year
  Sex: Female

DRUGS (9)
  1. ALDACTONE [Suspect]
     Indication: HYPERTROPHIC CARDIOMYOPATHY
     Dosage: 25 MG, 1X/DAY
     Route: 048
     Dates: start: 20130430, end: 20130513
  2. CARVEDILOL [Interacting]
     Indication: CARDIAC FAILURE CONGESTIVE
     Dosage: 3.12 MG, 1X/DAY
     Route: 048
     Dates: start: 20130503
  3. MIRTAZAPINE [Concomitant]
     Indication: DEPRESSION
     Dosage: 15 MG, 1X/DAY
     Route: 048
     Dates: start: 20130503
  4. DIGOXINE [Concomitant]
     Indication: ATRIAL FIBRILLATION
     Dosage: 0.12 MG, 1X/DAY
     Route: 048
     Dates: start: 20130430
  5. FUROSEMIDE [Concomitant]
     Indication: CARDIAC FAILURE CONGESTIVE
     Dosage: 60 MG, 1X/DAY
     Route: 048
     Dates: start: 20130503
  6. DEXNON [Concomitant]
     Indication: HYPOTHYROIDISM
     Dosage: 100 MG, 1X/DAY
     Route: 048
     Dates: start: 2001
  7. ORFIDAL [Concomitant]
     Indication: INSOMNIA
     Dosage: 1 MG, 1X/DAY
     Route: 048
     Dates: start: 20130430
  8. SINEMET-PLUS [Concomitant]
     Indication: PARKINSON^S DISEASE
     Dosage: 1 DF, 2X/DAY
     Route: 048
     Dates: start: 20130430
  9. SINTROM [Concomitant]
     Indication: ATRIAL FIBRILLATION
     Dosage: UNK
     Route: 048
     Dates: start: 20130430

REACTIONS (2)
  - Hyperkalaemia [Recovered/Resolved]
  - Drug interaction [Recovered/Resolved]
